FAERS Safety Report 8067786-9 (Version None)
Quarter: 2012Q1

REPORT INFORMATION
  Report Type: 
  Country: None (occurrence: None)
  Receive Date: 20120124
  Receipt Date: 20120117
  Transmission Date: 20120608
  Serious: Yes (Hospitalization)
  Sender: FDA-Public Use
  Company Number: JP-BAYER-2012-005146

PATIENT
  Age: 86 Year
  Sex: Female

DRUGS (2)
  1. ASPIRIN [Suspect]
     Dosage: 100 MG, QD
     Route: 048
  2. ADALAT [Concomitant]
     Route: 048

REACTIONS (1)
  - SKIN DISORDER [None]
